FAERS Safety Report 5169348-X (Version None)
Quarter: 2006Q4

REPORT INFORMATION
  Report Type: 
  Country: None (occurrence: None)
  Receive Date: 20061201
  Receipt Date: 20061127
  Transmission Date: 20070319
  Serious: Yes (Hospitalization, Other)
  Sender: FDA-Public Use
  Company Number: FRWYE217015JUL03

PATIENT
  Age: 79 Year
  Sex: Female

DRUGS (3)
  1. BISOPROLOL FUMARATE [Suspect]
     Dosage: 10 MG 1X PER 1 DAY
     Route: 048
     Dates: end: 20030610
  2. CORDARONE [Suspect]
     Route: 048
     Dates: end: 20030531
  3. FOZITEC (FOSINOPRIL, , 0) [Suspect]
     Dosage: 20 MG 1X PER 1 DAY
     Dates: end: 20030611

REACTIONS (5)
  - BRADYCARDIA [None]
  - DRUG INTERACTION [None]
  - ELECTROCARDIOGRAM QT PROLONGED [None]
  - TORSADE DE POINTES [None]
  - VENTRICULAR EXTRASYSTOLES [None]
